FAERS Safety Report 9038735 (Version 1)
Quarter: 2013Q1

REPORT INFORMATION
  Report Type: Report from Study
  Country: US (occurrence: US)
  Receive Date: 20130129
  Receipt Date: 20130129
  Transmission Date: 20140127
  Serious: No
  Sender: FDA-Public Use
  Company Number: US-ABBOTT-12P-163-0934599-00

PATIENT
  Age: 39 Year
  Sex: Male

DRUGS (3)
  1. HUMIRA 40 MG/0.8 ML PEN [Suspect]
     Indication: COLITIS ULCERATIVE
     Dates: start: 201204
  2. LIALDA [Concomitant]
     Indication: COLITIS ULCERATIVE
     Dosage: 1.2GM 3 TABLETS BY MOUTH DAILY
  3. PREDNISONE [Concomitant]
     Indication: COLITIS ULCERATIVE
     Dosage: 20MG BY MOUTH DAILY

REACTIONS (4)
  - Respiratory tract congestion [Not Recovered/Not Resolved]
  - Nasopharyngitis [Not Recovered/Not Resolved]
  - Paranasal sinus hypersecretion [Not Recovered/Not Resolved]
  - Seasonal allergy [Not Recovered/Not Resolved]
